FAERS Safety Report 7160481-X (Version None)
Quarter: 2010Q4

REPORT INFORMATION
  Report Type: 
  Country: None (occurrence: None)
  Receive Date: 20101214
  Receipt Date: 20091125
  Transmission Date: 20110411
  Serious: No
  Sender: FDA-Public Use
  Company Number: US-AMGEN-KDL376887

PATIENT

DRUGS (16)
  1. ENBREL [Suspect]
     Indication: PRODUCT USED FOR UNKNOWN INDICATION
     Dosage: 50 MG, QWK
     Route: 058
  2. METHOTREXATE [Concomitant]
  3. MONTELUKAST [Concomitant]
     Dosage: 10 MG, UNK
  4. PANTOPRAZOLE SODIUM [Concomitant]
     Dosage: 20 MG, UNK
  5. ZOLPIDEM TARTRATE [Concomitant]
     Dosage: 10 MG, UNK
  6. TOPIRAMATE [Concomitant]
     Dosage: 50 MG, UNK
  7. AMLODIPINE [Concomitant]
     Dosage: 5 MG, UNK
  8. GABAPENTIN [Concomitant]
     Dosage: 100 MG, UNK
  9. HYDROMORPHONE HYDROCHLORIDE [Concomitant]
     Dosage: 4 MG, UNK
  10. LEVOTHYROXINE SODIUM [Concomitant]
     Dosage: 88 A?G, UNK
  11. CLONAZEPAM [Concomitant]
     Dosage: 2 MG, UNK
  12. ONDANSETRON HYDROCHLORIDE [Concomitant]
     Dosage: 4 MG, UNK
  13. SUMATRIPTAN [Concomitant]
     Dosage: 6 MG, UNK
  14. FLUTICASONE/SALMETEROL [Concomitant]
  15. QUETIAPINE FUMARATE [Concomitant]
     Dosage: 200 MG, UNK
  16. ROSUVASTATIN CALCIUM [Concomitant]
     Dosage: 40 MG, UNK

REACTIONS (1)
  - URINARY TRACT INFECTION [None]
